FAERS Safety Report 6416277-7 (Version None)
Quarter: 2009Q4

REPORT INFORMATION
  Report Type: 
  Country: None (occurrence: None)
  Receive Date: 20091027
  Receipt Date: 20091020
  Transmission Date: 20100525
  Serious: Yes (Hospitalization, Other)
  Sender: FDA-Public Use
  Company Number: US-ELI_LILLY_AND_COMPANY-US200910004867

PATIENT
  Sex: Male

DRUGS (15)
  1. HUMULIN R [Suspect]
     Dosage: UNK, AS NEEDED
  2. HUMULIN R [Suspect]
     Dosage: UNK, AS NEEDED
  3. HUMULIN R [Suspect]
     Dosage: UNK, AS NEEDED
     Dates: start: 20020101
  4. LANTUS [Concomitant]
  5. FLOMAX [Concomitant]
  6. PLAVIX [Concomitant]
     Dosage: 75 MG, UNKNOWN
  7. AMOXICILLIN [Concomitant]
  8. HYDROCODONE [Concomitant]
  9. ZOCOR [Concomitant]
  10. ESOMEPRAZOLE MAGNESIUM [Concomitant]
  11. ASPIRIN [Concomitant]
  12. LISINOPRIL [Concomitant]
  13. COMBIGAN [Concomitant]
  14. HYDROCHLOROTHIAZIDE [Concomitant]
  15. FLURAZEPAM [Concomitant]

REACTIONS (7)
  - ARTHROSCOPIC SURGERY [None]
  - BLOOD GLUCOSE INCREASED [None]
  - CEREBROVASCULAR ACCIDENT [None]
  - DRUG INEFFECTIVE [None]
  - MOBILITY DECREASED [None]
  - NEPHROLITHIASIS [None]
  - TRANSIENT ISCHAEMIC ATTACK [None]
